FAERS Safety Report 23100577 (Version 2)
Quarter: 2023Q4

REPORT INFORMATION
  Report Type: Spontaneous
  Country: JP (occurrence: JP)
  Receive Date: 20231024
  Receipt Date: 20231122
  Transmission Date: 20240110
  Serious: Yes (Life-Threatening, Other)
  Sender: FDA-Public Use
  Company Number: JP-PFIZER INC-PV202300142502

PATIENT
  Age: 70 Year
  Sex: Male

DRUGS (6)
  1. PACLITAXEL [Suspect]
     Active Substance: PACLITAXEL
     Indication: Bladder cancer
     Dosage: 175 MG/M2, CYCLIC, SIX CYCLES, EVERY 4 WEEKS, ON DAY 1
  2. PACLITAXEL [Suspect]
     Active Substance: PACLITAXEL
     Indication: Metastases to lung
  3. IFOSFAMIDE [Suspect]
     Active Substance: IFOSFAMIDE
     Indication: Bladder cancer
     Dosage: 1500 MG/M2, CYCLIC, SIX CYCLES,EVERY 4 WEEKS, ON DAY 1, 2 3
  4. IFOSFAMIDE [Suspect]
     Active Substance: IFOSFAMIDE
     Indication: Metastases to lung
  5. NEDAPLATIN [Suspect]
     Active Substance: NEDAPLATIN
     Indication: Bladder cancer
     Dosage: 970 MG/M2, CYCLIC
  6. NEDAPLATIN [Suspect]
     Active Substance: NEDAPLATIN
     Indication: Metastases to lung
     Dosage: 70 MG/M2, CYCLIC, SIX CYCLES, EVERY 4 WEEKS, ON DAY 1

REACTIONS (3)
  - Thrombocytopenia [Unknown]
  - Febrile neutropenia [Unknown]
  - Off label use [Unknown]
